FAERS Safety Report 21033174 (Version 1)
Quarter: 2022Q3

REPORT INFORMATION
  Report Type: Spontaneous
  Country: US (occurrence: US)
  Receive Date: 20220701
  Receipt Date: 20220701
  Transmission Date: 20221027
  Serious: No
  Sender: FDA-Public Use
  Company Number: US-SUNOVION-2022SUN001888

PATIENT
  Age: 52 Year
  Sex: Female

DRUGS (1)
  1. ESZOPICLONE [Suspect]
     Active Substance: ESZOPICLONE
     Dosage: 3 MG, QD
     Route: 048

REACTIONS (2)
  - Insomnia [Unknown]
  - Headache [Unknown]
